FAERS Safety Report 22085247 (Version 2)
Quarter: 2023Q2

REPORT INFORMATION
  Report Type: Report from Study
  Country: US (occurrence: US)
  Receive Date: 20230310
  Receipt Date: 20230525
  Transmission Date: 20230721
  Serious: No
  Sender: FDA-Public Use
  Company Number: US-BRISTOL-MYERS SQUIBB COMPANY-2023-035202

PATIENT
  Age: 59 Year
  Sex: Male

DRUGS (3)
  1. CAMZYOS [Suspect]
     Active Substance: MAVACAMTEN
     Indication: Product used for unknown indication
     Route: 048
  2. CAMZYOS [Suspect]
     Active Substance: MAVACAMTEN
     Route: 048
     Dates: start: 20230522
  3. CAMZYOS [Suspect]
     Active Substance: MAVACAMTEN

REACTIONS (1)
  - Dizziness postural [Recovered/Resolved]
